FAERS Safety Report 23064724 (Version 1)
Quarter: 2023Q4

REPORT INFORMATION
  Report Type: Spontaneous
  Country: US (occurrence: US)
  Receive Date: 20231013
  Receipt Date: 20231013
  Transmission Date: 20240109
  Serious: No
  Sender: FDA-Public Use
  Company Number: US-INCYTE CORPORATION-2023IN010386

PATIENT

DRUGS (1)
  1. JAKAFI [Suspect]
     Active Substance: RUXOLITINIB
     Dosage: 25 MILLIGRAM, BID
     Route: 048
     Dates: start: 2015

REACTIONS (9)
  - Alopecia [Unknown]
  - Cognitive disorder [Unknown]
  - Pain [Unknown]
  - Abdominal distension [Unknown]
  - Arthralgia [Unknown]
  - Epistaxis [Unknown]
  - Memory impairment [Unknown]
  - Abdominal pain lower [Unknown]
  - Fatigue [Unknown]

NARRATIVE: CASE EVENT DATE: 20150101
